FAERS Safety Report 4330418-7 (Version None)
Quarter: 2004Q2

REPORT INFORMATION
  Report Type: 
  Country: None (occurrence: None)
  Receive Date: 20040402
  Receipt Date: 20030409
  Transmission Date: 20050107
  Serious: Yes (Other)
  Sender: FDA-Public Use
  Company Number: US-BRISTOL-MYERS SQUIBB COMPANY-12234845

PATIENT
  Sex: Male

DRUGS (7)
  1. HYDROXYUREA [Suspect]
     Route: 048
  2. LAMICTAL [Concomitant]
  3. NEURONTIN [Concomitant]
  4. NORVASC [Concomitant]
  5. COZAAR [Concomitant]
  6. LISINOPRIL [Concomitant]
  7. SINEMET [Concomitant]

REACTIONS (2)
  - PIGMENTATION DISORDER [None]
  - RASH SCALY [None]
